FAERS Safety Report 17925883 (Version 1)
Quarter: 2020Q2

REPORT INFORMATION
  Report Type: Report from Study
  Country: CR (occurrence: CR)
  Receive Date: 20200622
  Receipt Date: 20200622
  Transmission Date: 20200714
  Serious: Yes (Other)
  Sender: FDA-Public Use
  Company Number: NVSC2020CR172396

PATIENT
  Age: 83 Year
  Sex: Female

DRUGS (1)
  1. DIOVAN [Suspect]
     Active Substance: VALSARTAN
     Indication: PRODUCT USED FOR UNKNOWN INDICATION
     Dosage: 320 MG
     Route: 065

REACTIONS (7)
  - Feeling abnormal [Unknown]
  - Restlessness [Unknown]
  - Cardiac failure [Unknown]
  - Infarction [Unknown]
  - Dizziness [Unknown]
  - Hypertension [Unknown]
  - Memory impairment [Unknown]
